FAERS Safety Report 7761161-X (Version None)
Quarter: 2011Q3

REPORT INFORMATION
  Report Type: 
  Country: None (occurrence: None)
  Receive Date: 20110920
  Receipt Date: 20110908
  Transmission Date: 20111222
  Serious: Yes (Hospitalization)
  Sender: FDA-Public Use
  Company Number: US-ELI_LILLY_AND_COMPANY-US201101005188

PATIENT
  Sex: Female

DRUGS (15)
  1. HYDROCHLOROTHIAZIDE [Concomitant]
     Dosage: 25 MG, QD
  2. SINGULAIR [Concomitant]
     Indication: WHEEZING
     Dosage: 10 MG, QD
  3. NEXIUM [Concomitant]
     Dosage: 40 MG, QD
  4. LORTAB [Concomitant]
     Dosage: 5 MG, TID
  5. FLEXERIL [Concomitant]
     Dosage: 10 MG, QD
  6. GABAPENTIN [Concomitant]
     Dosage: 100 MG, QD
  7. FORTEO [Suspect]
     Dosage: 20 UG, QD
  8. FORTEO [Suspect]
     Dosage: 20 UG, QD
  9. LIPITOR [Concomitant]
     Dosage: 40 MG, QD
  10. FORTEO [Suspect]
     Indication: OSTEOPOROSIS
     Dosage: 20 UG, QD
     Dates: start: 20100101
  11. LEVOTHYROXINE SODIUM [Concomitant]
     Dosage: 125 MG, QD
  12. CITALOPRAM HYDROBROMIDE [Concomitant]
     Dosage: 10 MG, BID
  13. TRICOR [Concomitant]
     Dosage: 145 MG, QD
  14. FAMOTIDINE [Concomitant]
     Dosage: 20 MG, BID
  15. ASPIRIN [Concomitant]
     Dosage: 325 MG, QD

REACTIONS (6)
  - DEHYDRATION [None]
  - CATARACT [None]
  - COLITIS [None]
  - BACK PAIN [None]
  - PYREXIA [None]
  - DIARRHOEA [None]
